FAERS Safety Report 8905424 (Version 1)
Quarter: 2012Q4

REPORT INFORMATION
  Report Type: 
  Country: US (occurrence: US)
  Receive Date: 20121109
  Receipt Date: 20121109
  Transmission Date: 20130627
  Serious: No
  Sender: FDA-Public Use
  Company Number: US-ASTRAZENECA-2012SE82523

PATIENT
  Age: 50 Year
  Sex: Female
  Weight: 72.6 kg

DRUGS (4)
  1. FASLODEX [Suspect]
     Indication: BREAST CANCER METASTATIC
     Route: 030
     Dates: start: 20120918
  2. SYNTHROID [Concomitant]
     Indication: THYROIDECTOMY
  3. WATER PILL [Concomitant]
  4. CANCER MEDICATION [Concomitant]

REACTIONS (2)
  - Swelling [Unknown]
  - Tumour marker increased [Unknown]
